FAERS Safety Report 4947119-4 (Version None)
Quarter: 2006Q1

REPORT INFORMATION
  Report Type: 
  Country: None (occurrence: None)
  Receive Date: 20060201
  Receipt Date: 20051006
  Transmission Date: 20060701
  Serious: No
  Sender: FDA-Public Use
  Company Number: 2005PV002873

PATIENT
  Age: 60 Year
  Sex: Female
  Weight: 113.3993 kg

DRUGS (8)
  1. BYETTA [Suspect]
     Indication: DIABETES MELLITUS NON-INSULIN-DEPENDENT
     Dosage: 5 MCG; BID; SC
     Route: 058
     Dates: start: 20050827, end: 20050926
  2. AVANDIA [Concomitant]
  3. STARLIX [Concomitant]
  4. HUMULIN 70/30 [Concomitant]
  5. DIOVAN [Concomitant]
  6. LIPITOR [Concomitant]
  7. IBUPROFEN [Concomitant]
  8. INSULIN [Concomitant]

REACTIONS (2)
  - BLOOD GLUCOSE INCREASED [None]
  - DYSPEPSIA [None]
